FAERS Safety Report 13439709 (Version 1)
Quarter: 2017Q2

REPORT INFORMATION
  Report Type: Spontaneous
  Country: US (occurrence: US)
  Receive Date: 20170413
  Receipt Date: 20170413
  Transmission Date: 20170830
  Serious: Yes (Hospitalization)
  Sender: FDA-Public Use
  Company Number: US-SA-2017SA064313

PATIENT
  Age: 23 Year
  Sex: Female

DRUGS (24)
  1. APIDRA [Suspect]
     Active Substance: INSULIN GLULISINE
     Indication: TYPE 1 DIABETES MELLITUS
     Dosage: SLOW INFUSION INSULIN PUMP
     Route: 058
  2. INSULIN HUMAN REGULAR [Suspect]
     Active Substance: INSULIN HUMAN
     Indication: TYPE 1 DIABETES MELLITUS
     Dosage: MIXED WITH 0.4 MG METHYLPREDNISOLONE PER 1 UNIT INSULIN
     Route: 065
  3. COLCHICINE. [Suspect]
     Active Substance: COLCHICINE
     Indication: IMMUNOSUPPRESSION
     Route: 065
  4. COLCHICINE. [Suspect]
     Active Substance: COLCHICINE
     Indication: GASTROINTESTINAL DISORDER
     Route: 065
  5. APIDRA [Suspect]
     Active Substance: INSULIN GLULISINE
     Indication: TYPE 1 DIABETES MELLITUS
     Dosage: SLOW INFUSION
     Route: 058
  6. INSULIN GLARGINE [Suspect]
     Active Substance: INSULIN GLARGINE
     Indication: TYPE 1 DIABETES MELLITUS
     Route: 058
  7. APIDRA [Suspect]
     Active Substance: INSULIN GLULISINE
     Indication: TYPE 1 DIABETES MELLITUS
     Dosage: SLOW INFUSION INSULIN PUMP DOSE:0.800 UNIT(S)
     Route: 058
  8. APIDRA [Suspect]
     Active Substance: INSULIN GLULISINE
     Indication: TYPE 1 DIABETES MELLITUS
     Dosage: DOSE:3 UNIT(S)
     Route: 058
  9. LANTUS [Suspect]
     Active Substance: INSULIN GLARGINE
     Indication: TYPE 1 DIABETES MELLITUS
     Route: 058
  10. INSULIN HUMAN REGULAR [Suspect]
     Active Substance: INSULIN HUMAN
     Indication: TYPE 1 DIABETES MELLITUS
     Dosage: MIXED WITH 0.4 MG METHYLPREDNISOLONE PER 1 UNIT INSULIN
     Route: 065
  11. COLCHICINE. [Suspect]
     Active Substance: COLCHICINE
     Indication: HYPERSENSITIVITY VASCULITIS
     Route: 065
  12. COLCHICINE. [Suspect]
     Active Substance: COLCHICINE
     Indication: GASTROINTESTINAL DISORDER
     Route: 065
  13. INSULIN LISPRO [Suspect]
     Active Substance: INSULIN LISPRO
     Indication: TYPE 1 DIABETES MELLITUS
     Route: 058
  14. APIDRA [Suspect]
     Active Substance: INSULIN GLULISINE
     Indication: TYPE 1 DIABETES MELLITUS
     Dosage: SLOW INFUSION INSULIN PUMP DOSE:0.025 UNIT(S)
     Route: 058
  15. APIDRA [Suspect]
     Active Substance: INSULIN GLULISINE
     Indication: TYPE 1 DIABETES MELLITUS
     Dosage: INSULIN PUMP DOSE:1 UNIT(S)
     Route: 058
  16. 6-MP [Concomitant]
     Active Substance: MERCAPTOPURINE
     Indication: AUTOIMMUNE DISORDER
  17. ENOXAPARIN [Concomitant]
     Active Substance: ENOXAPARIN
  18. APIDRA [Suspect]
     Active Substance: INSULIN GLULISINE
     Indication: TYPE 1 DIABETES MELLITUS
     Dosage: DOSE:9 UNIT(S)
     Route: 058
  19. LANTUS [Suspect]
     Active Substance: INSULIN GLARGINE
     Indication: TYPE 1 DIABETES MELLITUS
     Dosage: DOSE:8 UNIT(S)
     Route: 058
  20. PREDNISONE. [Suspect]
     Active Substance: PREDNISONE
     Indication: IMMUNOSUPPRESSION
     Route: 065
  21. COLCHICINE. [Suspect]
     Active Substance: COLCHICINE
     Indication: HYPERSENSITIVITY VASCULITIS
     Route: 065
  22. LANTUS [Suspect]
     Active Substance: INSULIN GLARGINE
     Indication: TYPE 1 DIABETES MELLITUS
     Route: 058
  23. INSULIN HUMAN REGULAR [Suspect]
     Active Substance: INSULIN HUMAN
     Indication: TYPE 1 DIABETES MELLITUS
     Route: 042
  24. COLCHICINE. [Suspect]
     Active Substance: COLCHICINE
     Indication: IMMUNOSUPPRESSION
     Route: 065

REACTIONS (14)
  - Intentional product misuse [Unknown]
  - Off label use [Unknown]
  - Rash pruritic [Recovering/Resolving]
  - Induration [Recovering/Resolving]
  - Injection site pain [Recovering/Resolving]
  - Biopsy skin abnormal [Recovering/Resolving]
  - Diabetes mellitus inadequate control [Recovering/Resolving]
  - Product use issue [Unknown]
  - Skin lesion [Recovering/Resolving]
  - Skin plaque [Recovering/Resolving]
  - Purpura [Recovering/Resolving]
  - Type III immune complex mediated reaction [Recovering/Resolving]
  - Swelling [Recovering/Resolving]
  - Hypersensitivity vasculitis [Recovering/Resolving]
